FAERS Safety Report 6517762-X (Version None)
Quarter: 2009Q4

REPORT INFORMATION
  Report Type: 
  Country: None (occurrence: None)
  Receive Date: 20091224
  Receipt Date: 20091218
  Transmission Date: 20100525
  Serious: Yes (Other)
  Sender: FDA-Public Use
  Company Number: FI-NOVOPROD-302320

PATIENT

DRUGS (1)
  1. PROTAPHANE FLEXPEN [Suspect]
     Indication: DRUG USE FOR UNKNOWN INDICATION
     Dosage: 40 IU, QD
     Route: 058

REACTIONS (2)
  - ACIDOSIS [None]
  - DRUG INEFFECTIVE [None]
